FAERS Safety Report 8133113-1 (Version None)
Quarter: 2012Q1

REPORT INFORMATION
  Report Type: 
  Country: None (occurrence: None)
  Receive Date: 20120213
  Receipt Date: 20120207
  Transmission Date: 20120608
  Serious: Yes (Other)
  Sender: FDA-Public Use
  Company Number: PHEH2012US003317

PATIENT
  Sex: Female

DRUGS (4)
  1. GABAPENTIN [Suspect]
     Dosage: 300 MG, TID
     Route: 048
  2. DIOVAN [Suspect]
     Indication: BLOOD PRESSURE
     Dosage: 320 MG, QD IN THE MORNING
     Route: 048
  3. ACETAMINOPHEN [Concomitant]
     Dosage: UNK
     Route: 048
  4. LABETALOL HYDROCHLORIDE [Concomitant]
     Dosage: 200 MG, BID
     Route: 048

REACTIONS (1)
  - DEAFNESS [None]
